FAERS Safety Report 20123225 (Version 1)
Quarter: 2021Q4

REPORT INFORMATION
  Report Type: Spontaneous
  Country: US (occurrence: US)
  Receive Date: 20211129
  Receipt Date: 20211129
  Transmission Date: 20220303
  Serious: No
  Sender: FDA-Public Use
  Company Number: US-STRIDES ARCOLAB LIMITED-2021SP028493

PATIENT
  Age: 70 Year
  Sex: Male

DRUGS (5)
  1. TRIAMCINOLONE ACETONIDE [Suspect]
     Active Substance: TRIAMCINOLONE ACETONIDE
     Indication: Scrotal dermatitis
     Dosage: UNK
     Route: 061
  2. ZINC OXIDE [Suspect]
     Active Substance: ZINC OXIDE
     Indication: Scrotal dermatitis
     Dosage: UNK
     Route: 061
  3. DOXYCYCLINE [Suspect]
     Active Substance: DOXYCYCLINE
     Indication: Scrotal dermatitis
     Dosage: 100 MILLIGRAM, BID
     Route: 065
  4. FLUOROURACIL [Concomitant]
     Active Substance: FLUOROURACIL
     Indication: Actinic keratosis
     Dosage: UNK, BID (5 PERCENT)
     Route: 061
  5. FLUOROURACIL [Concomitant]
     Active Substance: FLUOROURACIL
     Dosage: UNK
     Route: 061

REACTIONS (1)
  - Drug ineffective [Unknown]
